FAERS Safety Report 9130657 (Version 2)
Quarter: 2013Q2

REPORT INFORMATION
  Report Type: Spontaneous
  Country: US (occurrence: US)
  Receive Date: 20130301
  Receipt Date: 20130523
  Transmission Date: 20140414
  Serious: No
  Sender: FDA-Public Use
  Company Number: US-BIOGENIDEC-2013BI018563

PATIENT
  Age: 57 Year
  Sex: Female

DRUGS (2)
  1. TYSABRI [Suspect]
     Indication: MULTIPLE SCLEROSIS
     Route: 042
     Dates: start: 20121207
  2. AVONEX [Concomitant]
     Indication: MULTIPLE SCLEROSIS
     Route: 030
     Dates: start: 20000310

REACTIONS (5)
  - Poor venous access [Recovered/Resolved]
  - Hypoaesthesia [Not Recovered/Not Resolved]
  - Biliary tract dilation procedure [Not Recovered/Not Resolved]
  - Secondary progressive multiple sclerosis [Recovered/Resolved]
  - Musculoskeletal chest pain [Not Recovered/Not Resolved]
